FAERS Safety Report 4393491-6 (Version None)
Quarter: 2004Q3

REPORT INFORMATION
  Report Type: 
  Country: None (occurrence: None)
  Receive Date: 20040707
  Receipt Date: 20040707
  Transmission Date: 20050211
  Serious: Yes (Other)
  Sender: FDA-Public Use
  Company Number: None

PATIENT
  Sex: Female
  Weight: 97.0698 kg

DRUGS (3)
  1. TRIAMTERENE/HYDROCHOROTHIAZIDE 37.5/25 [Suspect]
     Indication: HYPERTENSION
     Dosage: ORAL
     Route: 048
  2. NALDOLOL [Concomitant]
  3. LORAZEPAM [Concomitant]

REACTIONS (1)
  - DRUG INEFFECTIVE [None]
